FAERS Safety Report 5702611-X (Version None)
Quarter: 2008Q2

REPORT INFORMATION
  Report Type: 
  Country: None (occurrence: None)
  Receive Date: 20080410
  Receipt Date: 20080410
  Transmission Date: 20081010
  Serious: Yes (Disabling)
  Sender: FDA-Public Use
  Company Number: None

PATIENT
  Sex: Female
  Weight: 96.1626 kg

DRUGS (2)
  1. PREDNISONE [Suspect]
     Indication: PNEUMONIA
     Dosage: 60MG DAILY PO
     Route: 048
     Dates: start: 20080328, end: 20080403
  2. VERAMYST [Suspect]
     Indication: PNEUMONIA
     Dosage: 2 SPRAYS @ NOSTRIL DAILY NASAL
     Route: 045
     Dates: start: 20080328, end: 20080402

REACTIONS (17)
  - ARTHRALGIA [None]
  - ASTHENIA [None]
  - DRUG INEFFECTIVE [None]
  - DYSPNOEA [None]
  - FATIGUE [None]
  - GENERALISED OEDEMA [None]
  - HYPERHIDROSIS [None]
  - INSOMNIA [None]
  - MENSTRUAL DISORDER [None]
  - PHARYNGEAL HYPOAESTHESIA [None]
  - PHARYNGEAL OEDEMA [None]
  - PHARYNGOLARYNGEAL PAIN [None]
  - PRODUCTIVE COUGH [None]
  - PYREXIA [None]
  - SWELLING [None]
  - TREMOR [None]
  - WHEEZING [None]
